FAERS Safety Report 21577639 (Version 2)
Quarter: 2022Q4

REPORT INFORMATION
  Report Type: Report from Study
  Country: AR (occurrence: AR)
  Receive Date: 20221110
  Receipt Date: 20221125
  Transmission Date: 20230113
  Serious: Yes (Other)
  Sender: FDA-Public Use
  Company Number: AR-BRISTOL-MYERS SQUIBB COMPANY-2022-133185

PATIENT
  Age: 61 Year
  Sex: Female
  Weight: 83.5 kg

DRUGS (2)
  1. ELIQUIS [Suspect]
     Active Substance: APIXABAN
     Indication: Cerebrovascular accident prophylaxis
     Route: 065
     Dates: start: 20201229
  2. T4 100 [Concomitant]
     Indication: Product used for unknown indication
     Route: 065

REACTIONS (2)
  - Gene mutation identification test positive [Unknown]
  - Laboratory test abnormal [Unknown]
